FAERS Safety Report 4773552-X (Version None)
Quarter: 2005Q3

REPORT INFORMATION
  Report Type: 
  Country: None (occurrence: None)
  Receive Date: 20050920
  Receipt Date: 20040104
  Transmission Date: 20060218
  Serious: No
  Sender: FDA-Public Use
  Company Number: US-BRISTOL-MYERS SQUIBB COMPANY-12813580

PATIENT
  Age: 46 Year
  Sex: Male

DRUGS (9)
  1. BUSPAR [Suspect]
     Indication: ANGER
     Route: 048
     Dates: start: 20041227, end: 20050103
  2. BUSPAR [Suspect]
     Indication: IRRITABILITY
     Route: 048
     Dates: start: 20041227, end: 20050103
  3. BUSPAR [Suspect]
     Indication: AGITATION
     Route: 048
     Dates: start: 20041227, end: 20050103
  4. EFFEXOR [Concomitant]
  5. AMOXAPINE [Concomitant]
  6. SEROQUEL [Concomitant]
  7. ZYPREXA [Concomitant]
  8. TRAZODONE HCL [Concomitant]
  9. INSULIN [Concomitant]

REACTIONS (1)
  - AMMONIA INCREASED [None]
